FAERS Safety Report 7984875-5 (Version None)
Quarter: 2011Q4

REPORT INFORMATION
  Report Type: 
  Country: None (occurrence: None)
  Receive Date: 20111216
  Receipt Date: 20111012
  Transmission Date: 20120403
  Serious: No
  Sender: FDA-Public Use
  Company Number: US-ALLERGAN-1112867US

PATIENT
  Age: 65 Year
  Sex: Female

DRUGS (5)
  1. LATISSE [Suspect]
     Dosage: 1 GTT, UNKNOWN
     Route: 061
     Dates: start: 20111001
  2. RECENT UNSPECIFIED RADIATION [Concomitant]
     Indication: BREAST CANCER
  3. LATISSE [Suspect]
     Dosage: UNK
     Dates: start: 20090101, end: 20101101
  4. LATISSE [Suspect]
     Indication: GROWTH OF EYELASHES
     Dosage: 1 GTT, QHS
     Route: 061
     Dates: start: 20110601, end: 20111001
  5. RECENT UNSPECIFIED CHEMOTHERAPY [Suspect]
     Indication: BREAST CANCER

REACTIONS (3)
  - FOREIGN BODY SENSATION IN EYES [None]
  - EYELIDS PRURITUS [None]
  - TRICHORRHEXIS [None]
